FAERS Safety Report 4520666-5 (Version None)
Quarter: 2004Q4

REPORT INFORMATION
  Report Type: 
  Country: None (occurrence: None)
  Receive Date: 20041203
  Receipt Date: 20041124
  Transmission Date: 20050328
  Serious: Yes (Hospitalization)
  Sender: FDA-Public Use
  Company Number: 2004-05020

PATIENT
  Age: 57 Year
  Sex: Female
  Weight: 78.9 kg

DRUGS (5)
  1. OXYTROL [Suspect]
     Indication: HYPERTONIC BLADDER
     Dosage: 1 PATCH, 2/WEEK, TRANSDERMAL
     Route: 062
     Dates: start: 20041012, end: 20041120
  2. PRAVACHOL [Concomitant]
  3. LOPID [Concomitant]
  4. RELAFEN [Concomitant]
  5. DIOVAN ^NOVARTIS^ (VALSARTAN) [Concomitant]

REACTIONS (1)
  - URINARY TRACT INFECTION [None]
